FAERS Safety Report 8436651 (Version 3)
Quarter: 2012Q4

REPORT INFORMATION
  Report Type: 
  Country: TR (occurrence: TR)
  Receive Date: 20120302
  Receipt Date: 20121115
  Transmission Date: 20130627
  Serious: Yes (Other)
  Sender: FDA-Public Use
  Company Number: TR-AMGEN-TURSP2012011325

PATIENT
  Age: 61 Year
  Sex: Male

DRUGS (2)
  1. ENBREL [Suspect]
     Indication: PSORIASIS
     Dosage: 50 mg, weekly
     Route: 030
     Dates: start: 20101026, end: 20120215
  2. LEVODOPA [Concomitant]
     Dosage: UNK
     Dates: start: 201202

REACTIONS (4)
  - Incorrect route of drug administration [Unknown]
  - Arthralgia [Unknown]
  - Skin lesion [Unknown]
  - Parkinson^s disease [Not Recovered/Not Resolved]
